FAERS Safety Report 7879817-7 (Version None)
Quarter: 2011Q4

REPORT INFORMATION
  Report Type: 
  Country: None (occurrence: None)
  Receive Date: 20111101
  Receipt Date: 20111025
  Transmission Date: 20120403
  Serious: Yes (Hospitalization, Disabling, Other)
  Sender: FDA-Public Use
  Company Number: FR-ABBOTT-11P-056-0868354-00

PATIENT
  Age: 39 Year
  Sex: Male

DRUGS (1)
  1. HUMIRA [Suspect]
     Indication: ANKYLOSING SPONDYLITIS
     Dates: start: 20101201

REACTIONS (4)
  - RETINAL VEIN OCCLUSION [None]
  - HYPERCOAGULATION [None]
  - RETINAL ARTERY OCCLUSION [None]
  - BLINDNESS [None]
